FAERS Safety Report 8486873-4 (Version None)
Quarter: 2012Q3

REPORT INFORMATION
  Report Type: 
  Country: None (occurrence: None)
  Receive Date: 20120704
  Receipt Date: 20120629
  Transmission Date: 20120928
  Serious: Yes (Hospitalization)
  Sender: FDA-Public Use
  Company Number: FR-BAYER-2012-065473

PATIENT
  Age: 88 Year
  Sex: Female
  Weight: 82 kg

DRUGS (11)
  1. PLAVIX [Suspect]
     Dosage: 1 DF, QD
     Route: 048
     Dates: end: 20110218
  2. NEXIUM [Concomitant]
     Dosage: 1 DF, QD
     Route: 048
  3. FLECTOR [Concomitant]
  4. BISOPROLOL FUMARATE [Concomitant]
     Dosage: 1 DF, QD
     Route: 048
  5. LACTULOSE [Concomitant]
     Dosage: 1 DF, QD
  6. LASIX [Concomitant]
     Dosage: 0.5 DF, QD
     Route: 048
  7. NAPROXEN (ALEVE) [Suspect]
  8. LEVOTHYROXINE SODIUM [Concomitant]
     Dosage: 1 DF, QD
  9. ATORVASTATIN [Concomitant]
     Dosage: 1 DF, QD
     Route: 048
  10. IRBESARTAN AND HYDROCHLOROTHIAZIDE [Concomitant]
     Dosage: 1 DF, QD
     Route: 048
  11. PEPSANE [Concomitant]

REACTIONS (1)
  - EXTRADURAL HAEMATOMA [None]
